FAERS Safety Report 23964870 (Version 1)
Quarter: 2024Q2

REPORT INFORMATION
  Report Type: Spontaneous
  Country: FR (occurrence: None)
  Receive Date: 20240612
  Receipt Date: 20240612
  Transmission Date: 20240716
  Serious: Yes (Hospitalization)
  Sender: FDA-Public Use
  Company Number: 2024A132986

PATIENT
  Age: 65 Year
  Sex: Male
  Weight: 84.4 kg

DRUGS (2)
  1. DAPAGLIFLOZIN [Suspect]
     Active Substance: DAPAGLIFLOZIN
     Indication: Type 2 diabetes mellitus
     Dosage: 1 MORNING, 1 EVENING
     Route: 048
     Dates: start: 20240511, end: 20240517
  2. METFORMIN HYDROCHLORIDE [Concomitant]
     Active Substance: METFORMIN HYDROCHLORIDE
     Indication: Type 2 diabetes mellitus
     Dosage: 500 MG 3 TIMES A DAY, THEN FROM 11/05/2024: 500 MG 2 TIMES DAILY
     Route: 048

REACTIONS (2)
  - Diabetes insipidus [Recovered/Resolved]
  - Diabetic ketosis [Recovered/Resolved]

NARRATIVE: CASE EVENT DATE: 20240511
